FAERS Safety Report 19659826 (Version 2)
Quarter: 2021Q3

REPORT INFORMATION
  Report Type: Spontaneous
  Country: US (occurrence: US)
  Receive Date: 20210805
  Receipt Date: 20210817
  Transmission Date: 20211014
  Serious: No
  Sender: FDA-Public Use
  Company Number: US-LUPIN PHARMACEUTICALS INC.-2021-13547

PATIENT
  Sex: Female

DRUGS (1)
  1. LOVASTATIN TABLETS USP, 10 MG [Suspect]
     Active Substance: LOVASTATIN
     Indication: PRODUCT USED FOR UNKNOWN INDICATION
     Dosage: UNK
     Route: 048

REACTIONS (3)
  - Product commingling [Unknown]
  - Product dispensing issue [Unknown]
  - No adverse event [Unknown]
